FAERS Safety Report 7458739-X (Version None)
Quarter: 2011Q2

REPORT INFORMATION
  Report Type: 
  Country: None (occurrence: None)
  Receive Date: 20110504
  Receipt Date: 20100714
  Transmission Date: 20111010
  Serious: No
  Sender: FDA-Public Use
  Company Number: US-SANOFI-AVENTIS-2010SA041683

PATIENT
  Sex: Female

DRUGS (5)
  1. LANTUS [Suspect]
     Indication: DIABETES MELLITUS
     Route: 058
     Dates: start: 20100701
  2. APIDRA [Suspect]
     Indication: DIABETES MELLITUS
     Dosage: SLIDING SCALE
     Route: 058
     Dates: start: 20100701
  3. SOLOSTAR [Suspect]
     Dates: start: 20100701
  4. NOVOLOG MIX 70/30 [Concomitant]
     Dates: end: 20100701
  5. SOLOSTAR [Suspect]
     Indication: DIABETES MELLITUS
     Dates: start: 20100701

REACTIONS (5)
  - BLOOD GLUCOSE INCREASED [None]
  - HEADACHE [None]
  - MALAISE [None]
  - INJECTION SITE PAIN [None]
  - NAUSEA [None]
